FAERS Safety Report 7969626-2 (Version None)
Quarter: 2011Q4

REPORT INFORMATION
  Report Type: 
  Country: None (occurrence: None)
  Receive Date: 20111208
  Receipt Date: 20111126
  Transmission Date: 20120403
  Serious: Yes (Hospitalization)
  Sender: FDA-Public Use
  Company Number: UTC-012846

PATIENT
  Age: 38 Year
  Sex: Female

DRUGS (4)
  1. LETAIRIS [Concomitant]
  2. REMODULIN [Suspect]
     Indication: PULMONARY ARTERIAL HYPERTENSION
     Dosage: (0.05 UG/KG),SUBCUTANEOUS
     Route: 058
     Dates: start: 20100804
  3. TYVASO [Suspect]
     Dosage: INHALATION
     Route: 055
  4. ADCIRCA [Concomitant]

REACTIONS (1)
  - INFUSION SITE ABSCESS [None]
